FAERS Safety Report 14714038 (Version 2)
Quarter: 2018Q2

REPORT INFORMATION
  Report Type: Spontaneous
  Country: FR (occurrence: FR)
  Receive Date: 20180404
  Receipt Date: 20180406
  Transmission Date: 20180711
  Serious: Yes (Other)
  Sender: FDA-Public Use
  Company Number: FR-EMD SERONO-9018923

PATIENT
  Sex: Female

DRUGS (1)
  1. OVITRELLE [Suspect]
     Active Substance: CHORIOGONADOTROPIN ALFA
     Indication: ASSISTED FERTILISATION
     Dosage: EQUIVALENT TO ABOUT 10% OF THE PEN
     Route: 058

REACTIONS (4)
  - Blood pressure decreased [Recovering/Resolving]
  - Extra dose administered [Recovering/Resolving]
  - Device issue [Unknown]
  - Shock hypoglycaemic [Recovering/Resolving]
